FAERS Safety Report 5026205-7 (Version None)
Quarter: 2006Q2

REPORT INFORMATION
  Report Type: 
  Country: None (occurrence: None)
  Receive Date: 20060608
  Receipt Date: 20060525
  Transmission Date: 20061013
  Serious: Yes (Hospitalization)
  Sender: FDA-Public Use
  Company Number: 14146

PATIENT
  Age: 70 Year
  Sex: Male

DRUGS (5)
  1. PACLITAXEL [Suspect]
  2. CARBOPLATIN [Suspect]
  3. DMXAA [Suspect]
     Indication: NON-SMALL CELL LUNG CANCER
     Dates: start: 20060302, end: 20060302
  4. PARACETAMOL [Concomitant]
  5. DICLOFENAC SODIUM [Concomitant]

REACTIONS (5)
  - DYSPNOEA [None]
  - HAEMOPHILUS INFECTION [None]
  - NEUTROPENIC SEPSIS [None]
  - PRODUCTIVE COUGH [None]
  - SPUTUM CULTURE POSITIVE [None]
